FAERS Safety Report 14608490 (Version 1)
Quarter: 2018Q1

REPORT INFORMATION
  Report Type: Spontaneous
  Country: SE (occurrence: SE)
  Receive Date: 20180307
  Receipt Date: 20180307
  Transmission Date: 20180509
  Serious: Yes (Other)
  Sender: FDA-Public Use
  Company Number: SE-ASTELLAS-2018US010610

PATIENT
  Sex: Female

DRUGS (2)
  1. MIRABEGRON [Suspect]
     Active Substance: MIRABEGRON
     Route: 048
  2. MIRABEGRON [Suspect]
     Active Substance: MIRABEGRON
     Indication: HYPERTONIC BLADDER
     Route: 048

REACTIONS (7)
  - Arthralgia [Unknown]
  - Lip swelling [Unknown]
  - Dizziness [Unknown]
  - Blepharitis [Unknown]
  - Drug ineffective [Unknown]
  - Locked-in syndrome [Recovered/Resolved]
  - Headache [Unknown]
